FAERS Safety Report 7589344-2 (Version None)
Quarter: 2011Q3

REPORT INFORMATION
  Report Type: 
  Country: None (occurrence: None)
  Receive Date: 20110705
  Receipt Date: 20110622
  Transmission Date: 20111222
  Serious: Yes (Other)
  Sender: FDA-Public Use
  Company Number: US-ROCHE-701313

PATIENT
  Sex: Female
  Weight: 55.8 kg

DRUGS (3)
  1. ACCUTANE [Suspect]
     Dosage: DOSE AND FREQUENCY: 40 MG AND 80 MG ON ALTERNATE DAYS.
     Route: 065
     Dates: start: 19980904, end: 19981101
  2. ALESSE [Concomitant]
     Route: 048
  3. ACCUTANE [Suspect]
     Indication: ACNE
     Dosage: DOSE AND FREQUENCY: 40 MG AND 80 MG ON ALTERNATE DAY
     Route: 065
     Dates: start: 19980422, end: 19980801

REACTIONS (16)
  - INFLAMMATORY BOWEL DISEASE [None]
  - DEPRESSION [None]
  - OESOPHAGEAL DISORDER [None]
  - CROHN'S DISEASE [None]
  - XEROSIS [None]
  - STRESS [None]
  - ARTHRALGIA [None]
  - HEADACHE [None]
  - VOMITING [None]
  - PLATELET COUNT DECREASED [None]
  - EPISTAXIS [None]
  - MENORRHAGIA [None]
  - ANAEMIA [None]
  - CHAPPED LIPS [None]
  - DRY SKIN [None]
  - NAUSEA [None]
